FAERS Safety Report 8548965 (Version 4)
Quarter: 2012Q4

REPORT INFORMATION
  Report Type: Report from Study
  Country: US (occurrence: US)
  Receive Date: 20120507
  Receipt Date: 20121115
  Transmission Date: 20130627
  Serious: Yes (Hospitalization, Other)
  Sender: FDA-Public Use
  Company Number: US-BRISTOL-MYERS SQUIBB COMPANY-16555799

PATIENT
  Age: 68 Year
  Sex: Female

DRUGS (1)
  1. ORENCIA [Suspect]
     Indication: RHEUMATOID ARTHRITIS
     Route: 058
     Dates: start: 20060316, end: 20120126

REACTIONS (2)
  - Colon cancer [Not Recovered/Not Resolved]
  - Wound [Not Recovered/Not Resolved]
